FAERS Safety Report 4523440-9 (Version None)
Quarter: 2004Q4

REPORT INFORMATION
  Report Type: 
  Country: None (occurrence: None)
  Receive Date: 20041210
  Receipt Date: 20041202
  Transmission Date: 20050328
  Serious: Yes (Other)
  Sender: FDA-Public Use
  Company Number: PHBS2004JP16391

PATIENT

DRUGS (1)
  1. SANDOSTATIN [Suspect]
     Indication: ILEUS
     Route: 065

REACTIONS (2)
  - BACTERIAL SEPSIS [None]
  - INTERSTITIAL LUNG DISEASE [None]
